FAERS Safety Report 10651958 (Version 2)
Quarter: 2018Q1

REPORT INFORMATION
  Report Type: Spontaneous
  Country: CA (occurrence: CA)
  Receive Date: 20141215
  Receipt Date: 20180212
  Transmission Date: 20180508
  Serious: Yes (Other)
  Sender: FDA-Public Use
  Company Number: CA-009507513-1412CAN004206

PATIENT
  Sex: Male

DRUGS (6)
  1. ADVAIR HFA [Suspect]
     Active Substance: FLUTICASONE PROPIONATE\SALMETEROL XINAFOATE
     Indication: COUGH
     Dosage: 2 DF, BID (2 PUFFS, TWICE A DAY)
     Route: 055
     Dates: start: 20140416, end: 20140422
  2. VENTOLIN [Suspect]
     Active Substance: ALBUTEROL SULFATE
     Indication: INFLUENZA
     Dosage: 125 MG, BID (TWICE A DAY)
     Route: 065
  3. BIAXIN [Suspect]
     Active Substance: CLARITHROMYCIN
     Indication: INFLUENZA
     Dosage: 500 MG, BID (TWICE A DAY)
     Route: 065
  4. NASONEX [Suspect]
     Active Substance: MOMETASONE FUROATE
     Indication: INFLUENZA
     Dosage: 2 DF, BID (TWO PUFFS, TWICE A DAY)
     Route: 065
  5. ELTOR [Suspect]
     Active Substance: PSEUDOEPHEDRINE HYDROCHLORIDE
     Indication: INFLUENZA
     Dosage: 125 MG, BID, ELTOR 120
     Route: 065
  6. FLOVENT [Suspect]
     Active Substance: FLUTICASONE PROPIONATE
     Indication: INFLUENZA
     Dosage: 2 DF, BID (2 PUFFS, TWICE A DAY)
     Route: 065

REACTIONS (2)
  - Tracheal oedema [Unknown]
  - Drug ineffective [Unknown]
